FAERS Safety Report 11792607 (Version 1)
Quarter: 2015Q4

REPORT INFORMATION
  Report Type: Spontaneous
  Country: FR (occurrence: FR)
  Receive Date: 20151202
  Receipt Date: 20151202
  Transmission Date: 20160305
  Serious: Yes (Hospitalization, Other)
  Sender: FDA-Public Use
  Company Number: FR-ACCORD-035886

PATIENT
  Age: 68 Year
  Sex: Male

DRUGS (3)
  1. CISPLATIN. [Suspect]
     Active Substance: CISPLATIN
     Indication: SMALL CELL LUNG CANCER
     Dosage: FIRST COURSE
  2. ETOPOSIDE. [Concomitant]
     Active Substance: ETOPOSIDE
  3. CARBOPLATIN. [Suspect]
     Active Substance: CARBOPLATIN
     Indication: SMALL CELL LUNG CANCER
     Dosage: AT A 75% DOSE IN SECOND COURSE

REACTIONS (5)
  - Hyponatraemia [Recovered/Resolved]
  - Coma [Recovered/Resolved]
  - Inappropriate antidiuretic hormone secretion [Unknown]
  - Seizure [Recovered/Resolved]
  - Confusional state [Recovered/Resolved]
